FAERS Safety Report 6402098-8 (Version None)
Quarter: 2009Q4

REPORT INFORMATION
  Report Type: 
  Country: None (occurrence: None)
  Receive Date: 20091015
  Receipt Date: 20091006
  Transmission Date: 20100525
  Serious: Yes (Hospitalization)
  Sender: FDA-Public Use
  Company Number: CH-PURDUE-DEU-2009-0005601

PATIENT
  Age: 77 Year
  Sex: Female
  Weight: 57 kg

DRUGS (13)
  1. OXYGESIC [Suspect]
     Indication: TRIGEMINAL NEURALGIA
     Dosage: 30 MG, BID
     Route: 048
     Dates: start: 20090801
  2. PHENHYDRAN [Interacting]
     Indication: TRIGEMINAL NEURALGIA
     Dosage: UNK
     Route: 048
     Dates: start: 20090501
  3. OXYNORM [Suspect]
     Indication: TRIGEMINAL NEURALGIA
     Dosage: 5 MG, SEE TEXT
     Route: 048
     Dates: start: 20090801
  4. ZOLPIDEM [Suspect]
     Indication: TRIGEMINAL NEURALGIA
     Dosage: 5 MG, DAILY
     Route: 048
  5. NEURONTIN [Suspect]
     Indication: TRIGEMINAL NEURALGIA
     Dosage: 1200 MG, TID
     Route: 048
  6. RIVOTRIL [Suspect]
     Indication: TRIGEMINAL NEURALGIA
     Dosage: 0.5 MG, DAILY
     Route: 048
     Dates: end: 20090909
  7. TEGRETOL [Suspect]
     Indication: TRIGEMINAL NEURALGIA
     Dosage: 200 MG, BID
  8. NORVASC [Suspect]
     Indication: ESSENTIAL HYPERTENSION
     Dosage: 5 MG, DAILY
     Route: 048
  9. NEXIUM [Suspect]
     Indication: DRUG USE FOR UNKNOWN INDICATION
     Dosage: 40 MG, DAILY
     Route: 048
  10. DAFALGAN                           /00020001/ [Concomitant]
  11. NEURODOL                           /00033401/ [Concomitant]
  12. DEXAMETHASONE 0.5MG TAB [Concomitant]
  13. TENORMIN [Concomitant]

REACTIONS (2)
  - BALANCE DISORDER [None]
  - SOMNOLENCE [None]
